FAERS Safety Report 18370933 (Version 1)
Quarter: 2020Q4

REPORT INFORMATION
  Report Type: Spontaneous
  Country: US (occurrence: US)
  Receive Date: 20201012
  Receipt Date: 20201012
  Transmission Date: 20210114
  Serious: No
  Sender: FDA-Public Use
  Company Number: US-CELLTRION INC.-2019US020730

PATIENT

DRUGS (1)
  1. INFLECTRA [Suspect]
     Active Substance: INFLIXIMAB-DYYB
     Indication: SPINAL OSTEOARTHRITIS
     Dosage: UNK
     Route: 065

REACTIONS (3)
  - Product prescribing issue [Unknown]
  - Product use in unapproved indication [Unknown]
  - Off label use [Unknown]
